FAERS Safety Report 10253316 (Version 1)
Quarter: 2014Q2

REPORT INFORMATION
  Report Type: Spontaneous
  Country: US (occurrence: US)
  Receive Date: 20140623
  Receipt Date: 20140623
  Transmission Date: 20141212
  Serious: No
  Sender: FDA-Public Use
  Company Number: US-SHIONOGI, INC-2014000261

PATIENT
  Sex: 0

DRUGS (2)
  1. OSPHENA [Suspect]
     Indication: VULVOVAGINAL DRYNESS
     Dosage: UNK
     Route: 065
     Dates: start: 20140327, end: 20140401
  2. OSPHENA [Suspect]
     Indication: OFF LABEL USE

REACTIONS (3)
  - Rash pruritic [Recovered/Resolved]
  - Rash macular [Recovered/Resolved]
  - Off label use [Recovered/Resolved]
